FAERS Safety Report 22119676 (Version 1)
Quarter: 2023Q1

REPORT INFORMATION
  Report Type: Spontaneous
  Country: US (occurrence: US)
  Receive Date: 20230321
  Receipt Date: 20230321
  Transmission Date: 20230418
  Serious: Yes (Hospitalization)
  Sender: FDA-Public Use
  Company Number: US-MYLANLABS-2023M1029268

PATIENT
  Age: 30 Year
  Sex: Male

DRUGS (4)
  1. CISPLATIN [Suspect]
     Active Substance: CISPLATIN
     Indication: Testicular cancer metastatic
     Dosage: UNK UNK, CYCLE
     Route: 065
  2. BLEOMYCIN [Concomitant]
     Active Substance: BLEOMYCIN SULFATE
     Indication: Testicular cancer metastatic
     Dosage: UNK, CYCLE
     Route: 065
  3. ETOPOSIDE [Concomitant]
     Active Substance: ETOPOSIDE
     Indication: Testicular cancer metastatic
     Dosage: UNK UNK, CYCLE
     Route: 065
  4. ETOPOSIDE [Concomitant]
     Active Substance: ETOPOSIDE
     Dosage: UNK, CYCLE; (INITIALLY THERAPY DISCONTINUED, LATER RESUMED)
     Route: 065

REACTIONS (3)
  - Coronary artery dissection [Recovering/Resolving]
  - Cardiac ventricular thrombosis [Unknown]
  - Ischaemic cardiomyopathy [Unknown]
